FAERS Safety Report 7365477-0 (Version None)
Quarter: 2011Q1

REPORT INFORMATION
  Report Type: 
  Country: None (occurrence: None)
  Receive Date: 20110322
  Receipt Date: 20110307
  Transmission Date: 20110831
  Serious: Yes (Hospitalization, Disabling, Other)
  Sender: FDA-Public Use
  Company Number: US-BAYER-2011-003526

PATIENT
  Sex: Female
  Weight: 113.38 kg

DRUGS (5)
  1. YAZ [Suspect]
     Indication: ORAL CONTRACEPTION
     Dosage: UNK
     Dates: start: 20071201, end: 20091001
  2. YASMIN [Suspect]
     Indication: ORAL CONTRACEPTION
     Dosage: UNK
     Dates: start: 20070101, end: 20090101
  3. PROZAC [Concomitant]
  4. TRAZODONE [Concomitant]
  5. PHENTERMINE [Concomitant]

REACTIONS (5)
  - EMOTIONAL DISTRESS [None]
  - BILIARY DYSKINESIA [None]
  - DEFORMITY [None]
  - PAIN [None]
  - GALLBLADDER DISORDER [None]
